FAERS Safety Report 8271493-7 (Version None)
Quarter: 2012Q2

REPORT INFORMATION
  Report Type: 
  Country: None (occurrence: None)
  Receive Date: 20120410
  Receipt Date: 20120404
  Transmission Date: 20120825
  Serious: Yes (Other)
  Sender: FDA-Public Use
  Company Number: US-BAYER-2012-031790

PATIENT
  Age: 72 Year
  Sex: Male

DRUGS (8)
  1. OXYGEN [Concomitant]
     Dosage: AT NIGHT
  2. INSULIN [Concomitant]
     Indication: DIABETES MELLITUS
  3. ANTIHYPERTENSIVES [Concomitant]
  4. SORAFENIB (RAF KINASE INHIBITOR) [Suspect]
     Indication: HEPATIC NEOPLASM MALIGNANT
     Dosage: 400 MG, BID
     Dates: start: 20120326
  5. DIURETICS [Concomitant]
     Dosage: 2 DF, UNK
  6. LASIX [Concomitant]
     Indication: CARDIAC DISORDER
     Dosage: DAILY DOSE 1 DF
     Route: 048
  7. ANTIDEPRESSANTS [Concomitant]
     Indication: DEPRESSION
  8. ANTIHYPERTENSIVES [Concomitant]

REACTIONS (12)
  - NECK PAIN [None]
  - DIARRHOEA [None]
  - DECREASED APPETITE [None]
  - ASTHENIA [None]
  - GASTROINTESTINAL SOUNDS ABNORMAL [None]
  - ASCITES [None]
  - HYPOTENSION [None]
  - DRY SKIN [None]
  - ABDOMINAL DISCOMFORT [None]
  - DYSPNOEA [None]
  - ABDOMINAL PAIN [None]
  - CONSTIPATION [None]
